FAERS Safety Report 4716503-6 (Version None)
Quarter: 2005Q3

REPORT INFORMATION
  Report Type: 
  Country: None (occurrence: None)
  Receive Date: 20050719
  Receipt Date: 20050630
  Transmission Date: 20060218
  Serious: Yes (Death, Hospitalization, Other)
  Sender: FDA-Public Use
  Company Number: US-BRISTOL-MYERS SQUIBB COMPANY-13021514

PATIENT
  Age: 50 Year
  Sex: Female

DRUGS (5)
  1. CYCLOPHOSPHAMIDE [Suspect]
     Indication: BREAST CANCER
  2. DOXORUBICIN [Suspect]
     Indication: BREAST CANCER
  3. VINCRISTINE [Suspect]
     Indication: BREAST CANCER
  4. TAMOXIFEN CITRATE [Concomitant]
     Indication: BREAST CANCER
  5. PREDNISONE [Concomitant]
     Indication: BREAST CANCER
     Route: 048

REACTIONS (1)
  - SCLERODERMA [None]
